FAERS Safety Report 21691359 (Version 1)
Quarter: 2022Q4

REPORT INFORMATION
  Report Type: Report from Study
  Country: IN (occurrence: IN)
  Receive Date: 20221207
  Receipt Date: 20221207
  Transmission Date: 20230112
  Serious: Yes (Death, Other)
  Sender: FDA-Public Use
  Company Number: IN-SUN PHARMACEUTICAL INDUSTRIES LTD-2022R1-366874

PATIENT
  Age: 61 Year
  Sex: Male

DRUGS (4)
  1. AMPHOTERICIN B [Suspect]
     Active Substance: AMPHOTERICIN B
     Indication: Histoplasmosis
     Dosage: UNK(3.0-5.0 MG/KG)
     Route: 042
  2. ITRACONAZOLE [Suspect]
     Active Substance: ITRACONAZOLE
     Indication: Histoplasmosis
     Dosage: 200 MILLIGRAM, TID FOR 3 DAYS FOLLOWED BY 2 TIMES DAILY FOR AT LEAST 12 MONTHS
     Route: 048
  3. HYDROCORTISONE [Suspect]
     Active Substance: HYDROCORTISONE
     Indication: Histoplasmosis
     Dosage: UNK 15-25 MG/DAY
     Route: 048
  4. FLUDROCORTISONE [Suspect]
     Active Substance: FLUDROCORTISONE
     Indication: Histoplasmosis
     Dosage: UNK 50-150 MICROG/DAY
     Route: 065

REACTIONS (2)
  - Septic shock [Fatal]
  - Drug ineffective [Unknown]
